FAERS Safety Report 9778795 (Version 1)
Quarter: 2013Q4

REPORT INFORMATION
  Report Type: Spontaneous
  Country: NO (occurrence: NO)
  Receive Date: 20131223
  Receipt Date: 20131223
  Transmission Date: 20140711
  Serious: Yes (Hospitalization)
  Sender: FDA-Public Use
  Company Number: NO-B.I. PHARMACEUTICALS,INC./RIDGEFIELD-2013-BI-42442NO

PATIENT
  Age: 54 Year
  Sex: Male

DRUGS (9)
  1. PRADAXA [Suspect]
     Indication: ATRIAL FIBRILLATION
     Dosage: 300 MG
     Route: 048
  2. PLAVIX [Suspect]
     Indication: PERCUTANEOUS CORONARY INTERVENTION
     Dosage: 75 MG
     Route: 048
     Dates: start: 20130823, end: 20131105
  3. ALBYL-E [Suspect]
     Indication: PERCUTANEOUS CORONARY INTERVENTION
     Dosage: 75 MG
     Route: 048
     Dates: start: 20130823, end: 20131105
  4. DIGOXIN NYCOMED [Concomitant]
     Dosage: 125 MCG
  5. SOMAC [Concomitant]
     Indication: PROPHYLAXIS AGAINST GASTROINTESTINAL ULCER
     Dosage: 20 MG
     Route: 048
     Dates: start: 201309
  6. SIMVASTATIN [Concomitant]
     Dosage: 40 MG
  7. BISOPROLOL [Concomitant]
     Dosage: 10 MG
  8. BURINEX [Concomitant]
  9. ENALAPRIL [Concomitant]
     Dosage: 15 MG

REACTIONS (2)
  - Gastritis [Not Recovered/Not Resolved]
  - Duodenitis [Not Recovered/Not Resolved]
